FAERS Safety Report 16694284 (Version 1)
Quarter: 2019Q3

REPORT INFORMATION
  Report Type: Spontaneous
  Country: US (occurrence: US)
  Receive Date: 20190812
  Receipt Date: 20190812
  Transmission Date: 20191004
  Serious: No
  Sender: FDA-Public Use
  Company Number: US-BAYER-2019-149193

PATIENT
  Sex: Female

DRUGS (2)
  1. REGORAFENIB. [Suspect]
     Active Substance: REGORAFENIB
     Dosage: DAILY DOSE 160 MG (FOR 21 DAYS ON/7 DAYS OFF)
  2. REGORAFENIB. [Suspect]
     Active Substance: REGORAFENIB
     Dosage: DAILY DOSE 120 MG (14 DAYS ON/7 DAYS OFF )

REACTIONS (2)
  - Abdominal pain [None]
  - Biliary colic [None]
